FAERS Safety Report 9133315 (Version 1)
Quarter: 2013Q1

REPORT INFORMATION
  Report Type: Spontaneous
  Country: NO (occurrence: NO)
  Receive Date: 20130301
  Receipt Date: 20130301
  Transmission Date: 20140127
  Serious: Yes (Other)
  Sender: FDA-Public Use
  Company Number: NO-B.I. PHARMACEUTICALS,INC./RIDGEFIELD-2013-SW-00123NO

PATIENT
  Sex: Male

DRUGS (1)
  1. PRADAXA [Suspect]
     Route: 048
     Dates: start: 20120507

REACTIONS (2)
  - Drug ineffective [Recovered/Resolved]
  - Deep vein thrombosis [Recovered/Resolved]
